FAERS Safety Report 8902574 (Version 2)
Quarter: 2013Q1

REPORT INFORMATION
  Report Type: Spontaneous
  Country: IN (occurrence: IN)
  Receive Date: 20121112
  Receipt Date: 20130322
  Transmission Date: 20140127
  Serious: Yes (Death, Other)
  Sender: FDA-Public Use
  Company Number: PHHY2012IN103644

PATIENT
  Age: 52 Year
  Sex: Male

DRUGS (4)
  1. ISONIAZID [Suspect]
     Indication: PULMONARY TUBERCULOSIS
     Dosage: 300 MG PER DAY
  2. RIFAMPICIN [Suspect]
     Indication: PULMONARY TUBERCULOSIS
     Dosage: 450 MG PER DAY
  3. ETHAMBUTOL [Suspect]
     Indication: PULMONARY TUBERCULOSIS
     Dosage: 800 MG PER DAY
  4. PYRAZINAMIDE [Suspect]
     Indication: PULMONARY TUBERCULOSIS
     Dosage: 1500 MG PER DAY

REACTIONS (6)
  - Acute hepatic failure [Fatal]
  - Encephalopathy [Fatal]
  - Altered state of consciousness [Fatal]
  - Jaundice [Fatal]
  - Respiratory failure [Unknown]
  - Cardiac arrest [Unknown]
